FAERS Safety Report 17020328 (Version 1)
Quarter: 2019Q4

REPORT INFORMATION
  Report Type: Spontaneous
  Country: CA (occurrence: CA)
  Receive Date: 20191112
  Receipt Date: 20191112
  Transmission Date: 20200122
  Serious: Yes (Other)
  Sender: FDA-Public Use
  Company Number: CA-PFIZER INC-2019484126

PATIENT
  Age: 41 Year
  Sex: Female

DRUGS (21)
  1. ENBREL [Concomitant]
     Active Substance: ETANERCEPT
  2. METHOTREXATE SODIUM. [Suspect]
     Active Substance: METHOTREXATE SODIUM
     Route: 065
  3. CIMZIA [Concomitant]
     Active Substance: CERTOLIZUMAB PEGOL
     Dosage: SOLUTION SUBCUTANEOUS
  4. IBUPROFEN. [Concomitant]
     Active Substance: IBUPROFEN
  5. NAPROXEN. [Concomitant]
     Active Substance: NAPROXEN
  6. INDOMETHACIN [INDOMETACIN] [Suspect]
     Active Substance: INDOMETHACIN
     Route: 065
  7. ALEVE [Concomitant]
     Active Substance: NAPROXEN SODIUM
  8. COSENTYX [Suspect]
     Active Substance: SECUKINUMAB
     Dosage: 300 MG, MONTHLY
     Route: 058
  9. HUMIRA [Concomitant]
     Active Substance: ADALIMUMAB
  10. COSENTYX [Suspect]
     Active Substance: SECUKINUMAB
     Indication: ANKYLOSING SPONDYLITIS
     Dosage: 150 MG, MONTHLY
     Route: 058
  11. ALLOPURINOL. [Concomitant]
     Active Substance: ALLOPURINOL
  12. CELEBREX [Concomitant]
     Active Substance: CELECOXIB
  13. COVERSYL [PERINDOPRIL ARGININE] [Concomitant]
     Active Substance: PERINDOPRIL ARGININE
  14. DESOXIMETASONE. [Concomitant]
     Active Substance: DESOXIMETASONE
  15. SIMPONI [Concomitant]
     Active Substance: GOLIMUMAB
     Dosage: SOLUTION SUBCUTANEOUS
  16. SULFASALAZINE. [Concomitant]
     Active Substance: SULFASALAZINE
  17. FENTANYL CITRATE. [Suspect]
     Active Substance: FENTANYL CITRATE
     Dosage: (SOLUTION EPIDURAL)
     Route: 065
  18. GEMFIBROZIL. [Concomitant]
     Active Substance: GEMFIBROZIL
  19. VOLTAREN [Suspect]
     Active Substance: DICLOFENAC SODIUM
     Route: 065
  20. REMICADE [Concomitant]
     Active Substance: INFLIXIMAB
  21. SALAZOPYRIN [Concomitant]
     Active Substance: SULFASALAZINE

REACTIONS (9)
  - Bone density decreased [Not Recovered/Not Resolved]
  - Bursitis [Not Recovered/Not Resolved]
  - Inflammation [Not Recovered/Not Resolved]
  - Neuralgia [Not Recovered/Not Resolved]
  - Drug ineffective [Not Recovered/Not Resolved]
  - Headache [Not Recovered/Not Resolved]
  - Gait disturbance [Not Recovered/Not Resolved]
  - Feeling hot [Not Recovered/Not Resolved]
  - Tendonitis [Not Recovered/Not Resolved]
